FAERS Safety Report 12793134 (Version 1)
Quarter: 2016Q3

REPORT INFORMATION
  Report Type: Spontaneous
  Country: US (occurrence: US)
  Receive Date: 20160929
  Receipt Date: 20160929
  Transmission Date: 20161109
  Serious: No
  Sender: FDA-Public Use
  Company Number: None

PATIENT
  Age: 28 Year
  Sex: Male
  Weight: 68.04 kg

DRUGS (6)
  1. DIVIGEL [Concomitant]
     Active Substance: ESTRADIOL
  2. ADDERALL [Concomitant]
     Active Substance: AMPHETAMINE ASPARTATE\AMPHETAMINE SULFATE\DEXTROAMPHETAMINE SACCHARATE\DEXTROAMPHETAMINE SULFATE
  3. GENERIC MULTIVITAMIN [Concomitant]
  4. GENERIC CALCIUM + VITAMIN D [Concomitant]
  5. GENERIC OMEGA 3 OIL SUPPLEMENT [Concomitant]
  6. SPIRONOLACTONE 100 MG TABLET (COMMON BRAND(S) ALDACTONE) QUALITEST [Suspect]
     Active Substance: SPIRONOLACTONE
     Indication: DYSPHORIA
     Dosage: ?          QUANTITY:1 TABLET;?
     Route: 048
     Dates: start: 20140801

REACTIONS (5)
  - Vomiting [None]
  - Product shape issue [None]
  - Product substitution issue [None]
  - Product taste abnormal [None]
  - Retching [None]

NARRATIVE: CASE EVENT DATE: 20160714
